FAERS Safety Report 16630908 (Version 1)
Quarter: 2019Q3

REPORT INFORMATION
  Report Type: Spontaneous
  Country: US (occurrence: US)
  Receive Date: 20190612
  Receipt Date: 20190612
  Transmission Date: 20191004
  Serious: Yes (Life-Threatening, Hospitalization)
  Sender: FDA-Public Use
  Company Number: None

PATIENT
  Age: 62 Year

DRUGS (1)
  1. VANCOMYCIN [Suspect]
     Active Substance: VANCOMYCIN
     Indication: PREOPERATIVE CARE
     Dates: start: 20190404, end: 20190404

REACTIONS (2)
  - Respiratory depression [None]
  - Seizure [None]

NARRATIVE: CASE EVENT DATE: 20190404
